FAERS Safety Report 25775228 (Version 1)
Quarter: 2025Q3

REPORT INFORMATION
  Report Type: Spontaneous
  Country: US (occurrence: US)
  Receive Date: 20250909
  Receipt Date: 20250909
  Transmission Date: 20251020
  Serious: Yes (Life-Threatening, Hospitalization, Other)
  Sender: AMGEN
  Company Number: US-AMGEN-USASP2025171728

PATIENT
  Age: 75 Year
  Sex: Male

DRUGS (5)
  1. PREDNISONE [Suspect]
     Active Substance: PREDNISONE
     Indication: Asthma
     Route: 048
  2. PREDNISONE [Suspect]
     Active Substance: PREDNISONE
     Indication: Chronic obstructive pulmonary disease
     Route: 048
  3. PREDNISONE [Suspect]
     Active Substance: PREDNISONE
     Route: 048
  4. PREDNISONE [Suspect]
     Active Substance: PREDNISONE
     Route: 048
  5. PREDNISONE [Suspect]
     Active Substance: PREDNISONE
     Route: 048

REACTIONS (11)
  - Hypoxia [Unknown]
  - Fall [Unknown]
  - Injury [Unknown]
  - Pulmonary nocardiosis [Unknown]
  - Mycobacterium abscessus infection [Unknown]
  - Haemophilus infection [Unknown]
  - Pulmonary congestion [Unknown]
  - Acute respiratory failure [Unknown]
  - Ecchymosis [Unknown]
  - Syncope [Unknown]
  - Skin abrasion [Unknown]
